FAERS Safety Report 26095920 (Version 1)
Quarter: 2025Q4

REPORT INFORMATION
  Report Type: Spontaneous
  Country: EU (occurrence: EU)
  Receive Date: 20251127
  Receipt Date: 20251127
  Transmission Date: 20260118
  Serious: Yes (Hospitalization, Other)
  Sender: AUROBINDO
  Company Number: EU-URPL-DML-MLP.4401.1.203.2025

PATIENT
  Age: 12 Year
  Sex: Female
  Weight: 67.7 kg

DRUGS (5)
  1. IBUPROFEN [Suspect]
     Active Substance: IBUPROFEN
     Indication: Product used for unknown indication
     Dosage: 9 DOSAGE FORM (DOSAGE: 9 TABLETS.)
     Dates: start: 20250206, end: 20250206
  2. DROTAVERINE HYDROCHLORIDE [Suspect]
     Active Substance: DROTAVERINE HYDROCHLORIDE
     Indication: Product used for unknown indication
     Dosage: 6 DOSAGE FORM (DOSAGE: 6 TABLETS.)
     Dates: start: 20250205, end: 20250206
  3. KETOTIFEN FUMARATE [Suspect]
     Active Substance: KETOTIFEN FUMARATE
     Indication: Product used for unknown indication
     Dosage: 30 DOSAGE FORM (DOSAGE: 30 TABLETS.)
     Dates: start: 20250207, end: 20250207
  4. METAMIZOLE SODIUM [Suspect]
     Active Substance: METAMIZOLE SODIUM
     Indication: Product used for unknown indication
     Dosage: 10 DOSAGE FORM (DOSAGE: 10 TABLETS.)
     Dates: start: 20250207, end: 20250207
  5. TABCIN [Suspect]
     Active Substance: ASPIRIN\CHLORPHENIRAMINE MALEATE\PHENYLEPHRINE BITARTRATE
     Indication: Product used for unknown indication
     Dosage: UNK
     Dates: start: 20250207, end: 20250207

REACTIONS (7)
  - Nephropathy toxic [Recovering/Resolving]
  - Tachycardia [Recovering/Resolving]
  - N-terminal prohormone brain natriuretic peptide increased [Recovering/Resolving]
  - Proteinuria [Recovering/Resolving]
  - Renal scan abnormal [Recovering/Resolving]
  - Toxicity to various agents [Recovering/Resolving]
  - Blood creatinine increased [Recovered/Resolved]

NARRATIVE: CASE EVENT DATE: 20250201
